FAERS Safety Report 8365011-2 (Version None)
Quarter: 2012Q2

REPORT INFORMATION
  Report Type: 
  Country: None (occurrence: None)
  Receive Date: 20120516
  Receipt Date: 20120511
  Transmission Date: 20120825
  Serious: Yes (Other)
  Sender: FDA-Public Use
  Company Number: US-GLAXOSMITHKLINE-A0977740A

PATIENT
  Age: 66 Year
  Sex: Male

DRUGS (2)
  1. PROPRANOLOL [Suspect]
     Indication: PRODUCT USED FOR UNKNOWN INDICATION
     Route: 065
  2. FEVERFEW [Suspect]
     Indication: HEADACHE
     Route: 065

REACTIONS (5)
  - TOXICITY TO VARIOUS AGENTS [None]
  - DRUG INTERACTION [None]
  - ASTHENIA [None]
  - HEART RATE DECREASED [None]
  - HYPOTENSION [None]
